FAERS Safety Report 23868492 (Version 1)
Quarter: 2024Q2

REPORT INFORMATION
  Report Type: Spontaneous
  Country: CN (occurrence: CN)
  Receive Date: 20240517
  Receipt Date: 20240517
  Transmission Date: 20240716
  Serious: Yes (Hospitalization)
  Sender: FDA-Public Use
  Company Number: CN-PFIZER INC-PV202400063680

PATIENT
  Age: 1 Year
  Sex: Female
  Weight: 10 kg

DRUGS (1)
  1. AZITHROMYCIN [Suspect]
     Active Substance: AZITHROMYCIN
     Indication: Anti-infective therapy
     Dosage: 100 MG QD
     Route: 048
     Dates: start: 20240511, end: 20240511

REACTIONS (11)
  - Hypersensitivity [Unknown]
  - Hyperhidrosis [Unknown]
  - Peripheral coldness [Unknown]
  - Listless [Unknown]
  - Electrocardiogram RR interval abnormal [Unknown]
  - Hypokinesia [Unknown]
  - Pharyngeal erythema [Unknown]
  - Arrhythmia [Unknown]
  - Cardiac murmur [Unknown]
  - Coordination abnormal [Unknown]
  - Shock symptom [Unknown]

NARRATIVE: CASE EVENT DATE: 20240511
